FAERS Safety Report 13304620 (Version 1)
Quarter: 2017Q1

REPORT INFORMATION
  Report Type: Spontaneous
  Country: US (occurrence: US)
  Receive Date: 20170307
  Receipt Date: 20170307
  Transmission Date: 20170428
  Serious: Yes (Hospitalization)
  Sender: FDA-Public Use
  Company Number: None

PATIENT
  Age: 46 Year
  Sex: Male
  Weight: 81.65 kg

DRUGS (1)
  1. VENLAFAXINE EXTENDED RELEASE [Suspect]
     Active Substance: VENLAFAXINE HYDROCHLORIDE

REACTIONS (5)
  - Incarcerated hernia [None]
  - Product quality issue [None]
  - Migraine [None]
  - Vomiting [None]
  - Withdrawal syndrome [None]

NARRATIVE: CASE EVENT DATE: 20170228
